FAERS Safety Report 21932663 (Version 1)
Quarter: 2023Q1

REPORT INFORMATION
  Report Type: Spontaneous
  Country: US (occurrence: US)
  Receive Date: 20230131
  Receipt Date: 20230131
  Transmission Date: 20230417
  Serious: Yes (Other)
  Sender: FDA-Public Use
  Company Number: US-BOIRON-202300020

PATIENT
  Sex: Female

DRUGS (4)
  1. HOMEOPATHICS [Suspect]
     Active Substance: HOMEOPATHICS
     Indication: Product used for unknown indication
     Dosage: 3 OR 5 TABLETS, AT NIGHT
     Dates: start: 20221228, end: 20221228
  2. HOMEOPATHICS [Suspect]
     Active Substance: HOMEOPATHICS
     Dosage: 3 TABLETS, 2X/DAY
  3. HOMEOPATHICS [Suspect]
     Active Substance: HOMEOPATHICS
     Dosage: UNK
     Dates: end: 20230116
  4. ARNICA MONTANA FLOWER [Concomitant]
     Active Substance: ARNICA MONTANA FLOWER

REACTIONS (11)
  - Near death experience [Unknown]
  - Angina pectoris [Unknown]
  - Overdose [Unknown]
  - Heart rate irregular [Unknown]
  - Palpitations [Unknown]
  - Feeling abnormal [Unknown]
  - Emotional distress [Unknown]
  - Dyspnoea [Unknown]
  - Malaise [Unknown]
  - Liver disorder [Unknown]
  - Vomiting [Unknown]

NARRATIVE: CASE EVENT DATE: 20221228
